FAERS Safety Report 8240269-9 (Version None)
Quarter: 2012Q1

REPORT INFORMATION
  Report Type: 
  Country: None (occurrence: None)
  Receive Date: 20120328
  Receipt Date: 20120328
  Transmission Date: 20120608
  Serious: Yes (Life-Threatening)
  Sender: FDA-Public Use
  Company Number: None

PATIENT
  Sex: Male
  Weight: 72.574 kg

DRUGS (1)
  1. LEVOXYL [Suspect]
     Dosage: 100 MCG
     Route: 048
     Dates: start: 20111111, end: 20120326

REACTIONS (1)
  - HYPOTHYROIDISM [None]
